FAERS Safety Report 6732679-3 (Version None)
Quarter: 2010Q2

REPORT INFORMATION
  Report Type: 
  Country: None (occurrence: None)
  Receive Date: 20100519
  Receipt Date: 20090910
  Transmission Date: 20101027
  Serious: No
  Sender: FDA-Public Use
  Company Number: US-BRISTOL-MYERS SQUIBB COMPANY-14774608

PATIENT

DRUGS (1)
  1. BARACLUDE [Suspect]

REACTIONS (2)
  - HEADACHE [None]
  - LIVER DISORDER [None]
